FAERS Safety Report 5305856-6 (Version None)
Quarter: 2007Q2

REPORT INFORMATION
  Report Type: 
  Country: None (occurrence: None)
  Receive Date: 20070420
  Receipt Date: 20070420
  Transmission Date: 20071010
  Serious: Yes (Other)
  Sender: FDA-Public Use
  Company Number: None

PATIENT
  Sex: Female
  Weight: 55 kg

DRUGS (3)
  1. FLUDARABINE [Suspect]
     Indication: ACUTE MYELOID LEUKAEMIA
     Dosage: 51MG DAILY IV
     Route: 042
     Dates: start: 20061222, end: 20061226
  2. MELPHLAN [Suspect]
     Dosage: 238 TIMES ONE IV
     Route: 042
     Dates: start: 20061227, end: 20061227
  3. CAMPATH [Concomitant]

REACTIONS (9)
  - BRAIN OEDEMA [None]
  - COMPUTERISED TOMOGRAM ABNORMAL [None]
  - CONFUSIONAL STATE [None]
  - HEADACHE [None]
  - HYPERTENSION [None]
  - MENTAL STATUS CHANGES [None]
  - OXYGEN SATURATION DECREASED [None]
  - STEM CELL TRANSPLANT [None]
  - URINARY INCONTINENCE [None]
